FAERS Safety Report 17853529 (Version 1)
Quarter: 2020Q2

REPORT INFORMATION
  Report Type: Spontaneous
  Country: US (occurrence: US)
  Receive Date: 20200602
  Receipt Date: 20200602
  Transmission Date: 20200714
  Serious: No
  Sender: FDA-Public Use
  Company Number: US-ARBOR PHARMACEUTICALS, LLC-US-2019ARB001488

PATIENT
  Age: 73 Year
  Sex: Female

DRUGS (2)
  1. HORIZANT [Suspect]
     Active Substance: GABAPENTIN ENACARBIL
     Indication: RESTLESS LEGS SYNDROME
     Dosage: 600 MG, QD
     Route: 048
     Dates: start: 201909
  2. HORIZANT [Suspect]
     Active Substance: GABAPENTIN ENACARBIL
     Dosage: 300 MG, QD
     Route: 048
     Dates: start: 201910

REACTIONS (2)
  - Constipation [Not Recovered/Not Resolved]
  - Intentional product use issue [Unknown]

NARRATIVE: CASE EVENT DATE: 201909
